FAERS Safety Report 9032291 (Version 3)
Quarter: 2013Q3

REPORT INFORMATION
  Report Type: Spontaneous
  Country: US (occurrence: US)
  Receive Date: 20130122
  Receipt Date: 20130723
  Transmission Date: 20140515
  Serious: Yes (Other)
  Sender: FDA-Public Use
  Company Number: US-ELI_LILLY_AND_COMPANY-US201301005325

PATIENT
  Age: 68 Year
  Sex: Female
  Weight: 43.54 kg

DRUGS (19)
  1. ZYPREXA [Suspect]
     Indication: POST-TRAUMATIC STRESS DISORDER
     Dosage: 2.5 MG, UNKNOWN
     Dates: start: 200412
  2. ZYPREXA [Suspect]
     Dosage: 2.5 MG, BID
     Dates: start: 2006
  3. ZYPREXA [Suspect]
     Dosage: 7.5 MG, QD
     Dates: start: 2007
  4. ZYPREXA [Suspect]
     Dosage: 5 MG, BID
     Dates: start: 200705
  5. ZYPREXA [Suspect]
     Dosage: 10 MG, BID
     Dates: start: 20071129
  6. ZYPREXA [Suspect]
     Dosage: 20 MG, QD
     Dates: start: 2008
  7. ZYPREXA [Suspect]
     Dosage: 7.5 MG, UNKNOWN
     Dates: start: 201006
  8. ZYPREXA [Suspect]
     Dosage: 15 MG, UNKNOWN
     Dates: start: 2011
  9. ZYPREXA [Suspect]
     Dosage: 10 MG, UNKNOWN
     Dates: start: 20110801
  10. ZYPREXA [Suspect]
     Dosage: 7.5 MG, UNKNOWN
     Dates: start: 20110912
  11. ZYPREXA [Suspect]
     Dosage: 5 MG, UNKNOWN
     Dates: start: 20111024
  12. ZYPREXA [Suspect]
     Dosage: 5 MG, OTHER
     Dates: start: 20120130
  13. ZYPREXA [Suspect]
     Dosage: 2.5 MG, OTHER
     Dates: start: 20120130
  14. ZYPREXA [Suspect]
     Dosage: 1.25 MG, UNKNOWN
     Dates: start: 20120312, end: 20120424
  15. ZYPREXA [Suspect]
     Dosage: 5 MG, UNKNOWN
     Dates: start: 20130123
  16. ZYPREXA [Suspect]
     Dosage: 2.5 MG, UNKNOWN
  17. KLONOPIN [Concomitant]
     Dosage: 0.5 MG, TID
  18. TRAZODONE [Concomitant]
     Dosage: 100 MG, UNKNOWN
  19. VIT D [Concomitant]
     Dosage: 1 DF, UNKNOWN

REACTIONS (7)
  - Weight decreased [Recovered/Resolved]
  - Tremor [Recovered/Resolved]
  - Abdominal pain [Recovering/Resolving]
  - Back pain [Unknown]
  - Rheumatoid arthritis [Unknown]
  - Prescribed underdose [Unknown]
  - Off label use [Unknown]
